FAERS Safety Report 24464483 (Version 1)
Quarter: 2024Q4

REPORT INFORMATION
  Report Type: Report from Study
  Country: US (occurrence: US)
  Receive Date: 20241018
  Receipt Date: 20241018
  Transmission Date: 20250115
  Serious: No
  Sender: ROCHE
  Company Number: US-ROCHE-3495626

PATIENT
  Age: 74 Year
  Sex: Male

DRUGS (8)
  1. XOLAIR [Suspect]
     Active Substance: OMALIZUMAB
     Indication: Eosinophilic cellulitis
     Dosage: LAST INJECTION DATE: //2018
     Route: 058
     Dates: start: 2017, end: 2018
  2. XOLAIR [Suspect]
     Active Substance: OMALIZUMAB
  3. ASPIRIN [Concomitant]
     Active Substance: ASPIRIN
  4. CIALIS [Concomitant]
     Active Substance: TADALAFIL
  5. METOPROLOL TARTRATE [Concomitant]
     Active Substance: METOPROLOL TARTRATE
  6. NITROGLYCERIN [Concomitant]
     Active Substance: NITROGLYCERIN
  7. TRIAMCINOLONE [Concomitant]
     Active Substance: TRIAMCINOLONE
  8. TYLENOL [Concomitant]
     Active Substance: ACETAMINOPHEN

REACTIONS (3)
  - Off label use [Unknown]
  - Rash [Not Recovered/Not Resolved]
  - Skin plaque [Unknown]

NARRATIVE: CASE EVENT DATE: 20170101
